FAERS Safety Report 9290465 (Version 1)
Quarter: 2013Q2

REPORT INFORMATION
  Report Type: Report from Study
  Country: US (occurrence: US)
  Receive Date: 20130514
  Receipt Date: 20130514
  Transmission Date: 20140414
  Serious: Yes (Hospitalization)
  Sender: FDA-Public Use
  Company Number: US-RB-013705-10

PATIENT
  Age: 42 Year
  Sex: Male

DRUGS (3)
  1. SUBOXONE TABLET [Suspect]
     Route: 060
     Dates: start: 201007
  2. SUBOXONE TABLET [Suspect]
     Indication: DRUG ABUSE
     Route: 060
     Dates: end: 2012
  3. SUBOXONE TABLET [Suspect]
     Dosage: TAPERED FROM 2 MG/DAY TO 0.5 MG/DAY
     Route: 060
     Dates: start: 2012, end: 201303

REACTIONS (11)
  - Gallbladder disorder [Recovered/Resolved]
  - Drug withdrawal syndrome [Not Recovered/Not Resolved]
  - Wrong technique in drug usage process [Recovered/Resolved]
  - Depression [Not Recovered/Not Resolved]
  - Decreased interest [Not Recovered/Not Resolved]
  - Anxiety [Not Recovered/Not Resolved]
  - Headache [Recovered/Resolved]
  - Insomnia [Recovering/Resolving]
  - Diarrhoea [Recovered/Resolved]
  - Formication [Recovered/Resolved]
  - Abdominal pain upper [Recovered/Resolved]
